FAERS Safety Report 22622948 (Version 4)
Quarter: 2023Q2

REPORT INFORMATION
  Report Type: Spontaneous
  Country: US (occurrence: US)
  Receive Date: 20230621
  Receipt Date: 20230628
  Transmission Date: 20230721
  Serious: Yes (Other)
  Sender: FDA-Public Use
  Company Number: US-SA-SAC20230619001480

PATIENT
  Sex: Male

DRUGS (6)
  1. LEMTRADA [Suspect]
     Active Substance: ALEMTUZUMAB
     Indication: Multiple sclerosis
     Dosage: 5 DAYS OF TREATMENT
     Route: 042
     Dates: start: 20160118, end: 20160122
  2. LEMTRADA [Suspect]
     Active Substance: ALEMTUZUMAB
     Dosage: UNK
     Route: 042
     Dates: start: 20170206, end: 20170208
  3. GLATIRAMER [Concomitant]
     Active Substance: GLATIRAMER
  4. TYSABRI [Concomitant]
     Active Substance: NATALIZUMAB
  5. TECFIDERA [Concomitant]
     Active Substance: DIMETHYL FUMARATE
  6. GILENYA [Concomitant]
     Active Substance: FINGOLIMOD HYDROCHLORIDE

REACTIONS (2)
  - Thyroid cancer [Not Recovered/Not Resolved]
  - Thyroid mass [Unknown]

NARRATIVE: CASE EVENT DATE: 20230615
